FAERS Safety Report 22855547 (Version 2)
Quarter: 2025Q1

REPORT INFORMATION
  Report Type: Spontaneous
  Country: US (occurrence: US)
  Receive Date: 20230823
  Receipt Date: 20250123
  Transmission Date: 20250409
  Serious: No
  Sender: CHATTEM
  Company Number: US-OPELLA-2023OHG002719

PATIENT
  Age: 65 Year
  Sex: Female

DRUGS (1)
  1. ICY HOT PRO DRY [Suspect]
     Active Substance: CAMPHOR (SYNTHETIC)\MENTHOL
     Route: 065

REACTIONS (2)
  - No adverse event [Unknown]
  - Drug ineffective [Unknown]
